FAERS Safety Report 7455853-X (Version None)
Quarter: 2011Q2

REPORT INFORMATION
  Report Type: 
  Country: None (occurrence: None)
  Receive Date: 20110503
  Receipt Date: 20110428
  Transmission Date: 20111010
  Serious: Yes (Hospitalization)
  Sender: FDA-Public Use
  Company Number: A0882227B

PATIENT
  Age: 49 Year
  Sex: Female
  Weight: 65.8 kg

DRUGS (5)
  1. LAPATINIB [Suspect]
     Indication: BREAST CANCER
     Dosage: 750MG PER DAY
     Dates: start: 20100512
  2. DOCETAXEL [Suspect]
     Indication: BREAST CANCER
     Dosage: 75MGK EVERY 3 WEEKS
     Dates: start: 20100512
  3. RADIOTHERAPY [Concomitant]
     Indication: BREAST CANCER
     Route: 061
  4. CARBOPLATIN [Suspect]
     Indication: BREAST CANCER
     Route: 042
     Dates: start: 20100512
  5. TRASTUZUMAB [Suspect]
     Indication: BREAST CANCER
     Dosage: 4MGK CYCLIC
     Route: 042
     Dates: start: 20100512

REACTIONS (5)
  - DIARRHOEA [None]
  - NAUSEA [None]
  - DEHYDRATION [None]
  - COLITIS [None]
  - ABDOMINAL PAIN [None]
